FAERS Safety Report 17940882 (Version 1)
Quarter: 2020Q2

REPORT INFORMATION
  Report Type: Spontaneous
  Country: US (occurrence: US)
  Receive Date: 20200624
  Receipt Date: 20200624
  Transmission Date: 20200714
  Serious: Yes (Other)
  Sender: FDA-Public Use
  Company Number: US-PFIZER INC-2020202851

PATIENT
  Age: 47 Year

DRUGS (1)
  1. DILANTIN [Suspect]
     Active Substance: PHENYTOIN
     Dosage: 200 MG, 2X/DAY ( TAKE 2 CAPSULES BY MOUTH QAM AND 2 CAPSULES BY MOUTH QPM)
     Route: 048

REACTIONS (1)
  - Cerebrovascular accident [Unknown]
